FAERS Safety Report 9054051 (Version 1)
Quarter: 2013Q1

REPORT INFORMATION
  Report Type: Spontaneous
  Country: US (occurrence: US)
  Receive Date: 20130208
  Receipt Date: 20130208
  Transmission Date: 20140127
  Serious: Yes (Other)
  Sender: FDA-Public Use
  Company Number: US-ASTELLAS-2013US001278

PATIENT
  Sex: 0

DRUGS (1)
  1. TARCEVA [Suspect]
     Indication: NON-SMALL CELL LUNG CANCER
     Dosage: UNK
     Route: 048

REACTIONS (2)
  - Mycobacterium avium complex infection [Unknown]
  - Rash [Recovered/Resolved]
